FAERS Safety Report 4806207-3 (Version None)
Quarter: 2005Q4

REPORT INFORMATION
  Report Type: 
  Country: None (occurrence: None)
  Receive Date: 20051019
  Receipt Date: 20051019
  Transmission Date: 20060501
  Serious: No
  Sender: FDA-Public Use
  Company Number: None

PATIENT
  Age: 86 Year
  Sex: Male
  Weight: 69 kg

DRUGS (7)
  1. LEVAQUIN [Suspect]
     Indication: PNEUMONIA
  2. TOPROL-XL [Concomitant]
  3. COZAAR [Concomitant]
  4. COUMADIN [Concomitant]
  5. IMDUR [Concomitant]
  6. PLAVIX [Concomitant]
  7. PROCRIT [Concomitant]

REACTIONS (1)
  - TENDON RUPTURE [None]
